FAERS Safety Report 5120476-4 (Version None)
Quarter: 2006Q4

REPORT INFORMATION
  Report Type: 
  Country: None (occurrence: None)
  Receive Date: 20061004
  Receipt Date: 20060708
  Transmission Date: 20070319
  Serious: Yes (Hospitalization)
  Sender: FDA-Public Use
  Company Number: US-ROCHE-454879

PATIENT
  Age: 55 Year
  Sex: Female
  Weight: 58.1 kg

DRUGS (3)
  1. PEGASYS [Suspect]
     Route: 058
     Dates: start: 20060518, end: 20060710
  2. COPEGUS [Suspect]
     Route: 048
     Dates: start: 20060518, end: 20060710
  3. PAIN MEDICATION NOS [Concomitant]
     Indication: PAIN

REACTIONS (11)
  - ANAEMIA [None]
  - DEHYDRATION [None]
  - DIARRHOEA [None]
  - DIZZINESS [None]
  - DIZZINESS POSTURAL [None]
  - FALL [None]
  - HALLUCINATION [None]
  - HYPOTENSION [None]
  - LOSS OF CONSCIOUSNESS [None]
  - PSYCHOTIC DISORDER [None]
  - VOMITING [None]
